FAERS Safety Report 7797770-1 (Version None)
Quarter: 2011Q4

REPORT INFORMATION
  Report Type: 
  Country: None (occurrence: None)
  Receive Date: 20111005
  Receipt Date: 20110921
  Transmission Date: 20120403
  Serious: Yes (Hospitalization)
  Sender: FDA-Public Use
  Company Number: FR-JNJFOC-20111000201

PATIENT
  Sex: Female

DRUGS (8)
  1. NOCTAMIDE [Concomitant]
     Dosage: ONCE A WEEK
     Route: 065
  2. BISOPROLOL FUMARATE AND HYDROCHLOROTHIAZIDE [Concomitant]
     Dosage: ONCE A WEEK
     Route: 065
  3. ACETAMINOPHEN AND TRAMADOL HCL [Suspect]
     Indication: PAIN
     Dosage: THREE TIMES A DAY
     Route: 048
     Dates: start: 20110903, end: 20110905
  4. OFLOXACIN [Suspect]
     Indication: URINARY TRACT INFECTION
     Dosage: TWO TIMES A DAY
     Route: 042
     Dates: start: 20110903, end: 20110905
  5. MABTHERA [Suspect]
     Indication: RHEUMATOID ARTHRITIS
     Dosage: ONCE A WEEK
     Route: 042
     Dates: start: 20110521, end: 20110521
  6. OFLOXACIN [Suspect]
     Dosage: TWO TIMES A DAY
     Route: 042
     Dates: start: 20110501
  7. METHOTREXATE SODIUM [Suspect]
     Indication: RHEUMATOID ARTHRITIS
     Dosage: ONCE A WEEK
     Route: 058
     Dates: start: 20101001, end: 20110901
  8. OLMESARTAN MEDOXOMIL [Concomitant]
     Dosage: ONCE A WEEK
     Route: 065

REACTIONS (3)
  - ANAEMIA [None]
  - AGRANULOCYTOSIS [None]
  - LYMPHOPENIA [None]
